FAERS Safety Report 8955977 (Version 2)
Quarter: 2012Q4

REPORT INFORMATION
  Report Type: Report from Study
  Country: DE (occurrence: DE)
  Receive Date: 20121210
  Receipt Date: 20121224
  Transmission Date: 20130627
  Serious: Yes (Other)
  Sender: FDA-Public Use
  Company Number: PHHY2012DE112965

PATIENT
  Age: 14 Year
  Sex: Female
  Weight: 38.3 kg

DRUGS (3)
  1. ICL670A [Suspect]
     Indication: SICKLE CELL ANAEMIA
     Dosage: 500 mg, QD
     Route: 048
     Dates: start: 201205
  2. HYDROXYCARBAMIDE [Concomitant]
     Dosage: 500 mg, QD
     Route: 048
     Dates: start: 20120130
  3. TRANSFUSIONS [Concomitant]
     Dates: start: 19981020

REACTIONS (4)
  - Blood bilirubin increased [Not Recovered/Not Resolved]
  - Aspartate aminotransferase increased [Unknown]
  - Blood alkaline phosphatase increased [Unknown]
  - Serum ferritin increased [Unknown]
